FAERS Safety Report 21808458 (Version 1)
Quarter: 2023Q1

REPORT INFORMATION
  Report Type: Spontaneous
  Country: US (occurrence: US)
  Receive Date: 20230103
  Receipt Date: 20230103
  Transmission Date: 20230418
  Serious: No
  Sender: FDA-Public Use
  Company Number: US-LEO Pharma-348195

PATIENT
  Age: 77 Year
  Sex: Male

DRUGS (2)
  1. ADBRY [Suspect]
     Active Substance: TRALOKINUMAB-LDRM
     Indication: Pruritus
     Dates: start: 20221222
  2. ADBRY [Suspect]
     Active Substance: TRALOKINUMAB-LDRM
     Indication: Pruritus
     Dates: start: 20221222

REACTIONS (3)
  - Dizziness [Not Recovered/Not Resolved]
  - Product use in unapproved indication [Unknown]
  - Nausea [Not Recovered/Not Resolved]

NARRATIVE: CASE EVENT DATE: 20221222
